FAERS Safety Report 6164169-3 (Version None)
Quarter: 2009Q2

REPORT INFORMATION
  Report Type: 
  Country: None (occurrence: None)
  Receive Date: 20090420
  Receipt Date: 20090406
  Transmission Date: 20091009
  Serious: Yes (Life-Threatening, Hospitalization, Other)
  Sender: FDA-Public Use
  Company Number: 58783

PATIENT
  Age: 16 Year
  Sex: Male
  Weight: 109 kg

DRUGS (1)
  1. ETOPOSIDE [Suspect]
     Indication: ACUTE MYELOID LEUKAEMIA
     Dosage: 150MG 1XDAY IV
     Route: 042
     Dates: start: 20061128

REACTIONS (1)
  - CAECITIS [None]
